FAERS Safety Report 20896599 (Version 1)
Quarter: 2022Q2

REPORT INFORMATION
  Report Type: Spontaneous
  Country: US (occurrence: US)
  Receive Date: 20220531
  Receipt Date: 20220531
  Transmission Date: 20220720
  Serious: Yes (Other)
  Sender: FDA-Public Use
  Company Number: US-ORGANON-O2205USA002320

PATIENT
  Sex: Female

DRUGS (1)
  1. NEXPLANON [Suspect]
     Active Substance: ETONOGESTREL
     Dosage: 68 MG (1 IMPLANT)
     Route: 059
     Dates: start: 20220309

REACTIONS (5)
  - Device dislocation [Not Recovered/Not Resolved]
  - Implant site bruising [Recovered/Resolved]
  - Implant site pain [Not Recovered/Not Resolved]
  - Dysmenorrhoea [Recovering/Resolving]
  - Menstrual disorder [Unknown]

NARRATIVE: CASE EVENT DATE: 20220101
